FAERS Safety Report 17094701 (Version 4)
Quarter: 2020Q3

REPORT INFORMATION
  Report Type: Report from Study
  Country: CN (occurrence: CN)
  Receive Date: 20191130
  Receipt Date: 20200907
  Transmission Date: 20201102
  Serious: Yes (Hospitalization)
  Sender: FDA-Public Use
  Company Number: CN-AMGEN-CHNSP2019198545

PATIENT
  Age: 60 Year
  Sex: Female

DRUGS (6)
  1. CINACALCET HCL ? KHK [Suspect]
     Active Substance: CINACALCET HYDROCHLORIDE
     Indication: HYPERPARATHYROIDISM SECONDARY
     Dosage: 25 MILLIGRAM, QD
     Route: 048
     Dates: start: 20171101, end: 201808
  2. CALCITRIOL. [Concomitant]
     Active Substance: CALCITRIOL
     Indication: HYPERTHYROIDISM
     Dosage: 0.5 UG, QD
     Route: 048
     Dates: start: 2017
  3. NADROPARIN CALCIUM [Concomitant]
     Active Substance: NADROPARIN CALCIUM
     Indication: ANTICOAGULANT THERAPY
     Dosage: 4100 IU, QD
     Route: 041
     Dates: start: 2005
  4. LANTHANUM CARBONATE. [Concomitant]
     Active Substance: LANTHANUM CARBONATE
     Indication: HYPERPHOSPHATAEMIA
     Dosage: 2 DF, TID
     Route: 048
     Dates: start: 20170123
  5. RECOMBINANT HUMAN ERYTHROPOIETIN [Concomitant]
     Active Substance: ERYTHROPOIETIN
     Indication: ANAEMIA
     Dosage: 4100 IU, 1X/2 WEEKS
     Route: 041
     Dates: start: 2005
  6. CINACALCET HCL ? KHK [Suspect]
     Active Substance: CINACALCET HYDROCHLORIDE
     Dosage: 25 MILLIGRAM, QD
     Route: 048
     Dates: start: 20181001

REACTIONS (1)
  - Bladder cancer [Recovered/Resolved]

NARRATIVE: CASE EVENT DATE: 20190110
